FAERS Safety Report 6667965-9 (Version None)
Quarter: 2010Q2

REPORT INFORMATION
  Report Type: 
  Country: None (occurrence: None)
  Receive Date: 20100405
  Receipt Date: 20100330
  Transmission Date: 20101027
  Serious: Yes (Hospitalization)
  Sender: FDA-Public Use
  Company Number: US-GILEAD-2010-0028213

PATIENT
  Sex: Female

DRUGS (11)
  1. LETAIRIS [Suspect]
     Indication: PULMONARY ARTERIAL HYPERTENSION
     Route: 048
     Dates: start: 20100318, end: 20100328
  2. REVATIO [Concomitant]
  3. WARFARIN SODIUM [Concomitant]
  4. NEURONTIN [Concomitant]
  5. PRILOSEC [Concomitant]
  6. CELEXA [Concomitant]
  7. RISPERDAL [Concomitant]
  8. PAXIL [Concomitant]
  9. VICODIN [Concomitant]
  10. ULTRAM [Concomitant]
  11. VICOPROFEN [Concomitant]

REACTIONS (4)
  - ASTHENIA [None]
  - FLUID RETENTION [None]
  - MALAISE [None]
  - SYNCOPE [None]
